FAERS Safety Report 11735909 (Version 1)
Quarter: 2015Q4

REPORT INFORMATION
  Report Type: Spontaneous
  Country: US (occurrence: US)
  Receive Date: 20151113
  Receipt Date: 20151113
  Transmission Date: 20160304
  Serious: No
  Sender: FDA-Public Use
  Company Number: US-JNJFOC-20151001267

PATIENT

DRUGS (1)
  1. RISPERDAL CONSTA [Suspect]
     Active Substance: RISPERIDONE
     Indication: ACCIDENTAL EXPOSURE TO PRODUCT
     Dosage: NURSE WAS EXPOSED TO 25 MG SUSPENSION IM
     Route: 030

REACTIONS (2)
  - Accidental exposure to product [Recovered/Resolved]
  - Device malfunction [Recovered/Resolved]

NARRATIVE: CASE EVENT DATE: 201509
